FAERS Safety Report 21255875 (Version 1)
Quarter: 2022Q3

REPORT INFORMATION
  Report Type: Spontaneous
  Country: US (occurrence: US)
  Receive Date: 20220825
  Receipt Date: 20220825
  Transmission Date: 20221027
  Serious: No
  Sender: FDA-Public Use
  Company Number: US-BIOGEN-2022BI01149319

PATIENT
  Sex: Female

DRUGS (1)
  1. TYSABRI [Suspect]
     Active Substance: NATALIZUMAB
     Indication: Multiple sclerosis
     Route: 050

REACTIONS (6)
  - Polycystic ovaries [Unknown]
  - White blood cell count decreased [Unknown]
  - Anger [Unknown]
  - General physical health deterioration [Unknown]
  - Glucose tolerance impaired [Unknown]
  - Fatigue [Unknown]
